FAERS Safety Report 16774592 (Version 1)
Quarter: 2019Q3

REPORT INFORMATION
  Report Type: Spontaneous
  Country: IN (occurrence: IN)
  Receive Date: 20190905
  Receipt Date: 20190905
  Transmission Date: 20191005
  Serious: Yes (Hospitalization, Other)
  Sender: FDA-Public Use
  Company Number: IN-STRIDES ARCOLAB LIMITED-2019SP008323

PATIENT
  Age: 35 Year
  Sex: Female

DRUGS (5)
  1. LAMIVUDINE. [Concomitant]
     Active Substance: LAMIVUDINE
     Indication: HIV INFECTION
     Dosage: 1 DF PER DAY
     Route: 065
  2. EFAVIRENZ. [Concomitant]
     Active Substance: EFAVIRENZ
     Indication: HIV INFECTION
     Dosage: 1 DF PER DAY
     Route: 065
  3. IBUPROFEN. [Suspect]
     Active Substance: IBUPROFEN
     Indication: POSTOPERATIVE ANALGESIA
     Dosage: 400 MG, EVERY 8 HRS (T.I.D)
     Route: 065
  4. TENOFOVIR [Concomitant]
     Active Substance: TENOFOVIR
     Indication: HIV INFECTION
     Dosage: 1 DF PER DAY
     Route: 065
  5. OMEPRAZOLE. [Concomitant]
     Active Substance: OMEPRAZOLE
     Indication: PRODUCT USED FOR UNKNOWN INDICATION
     Dosage: 1 DF, EVERY 12 HRS (B.I.D)
     Route: 065

REACTIONS (8)
  - Dysphagia [Recovered/Resolved]
  - Tongue discolouration [Recovered/Resolved]
  - Mouth ulceration [Recovered/Resolved]
  - Fixed eruption [Recovered/Resolved]
  - Oral discomfort [Recovered/Resolved]
  - Lip discolouration [Recovered/Resolved]
  - Oral mucosal discolouration [Recovered/Resolved]
  - Erythema multiforme [Recovered/Resolved]
